FAERS Safety Report 5215173-0 (Version None)
Quarter: 2007Q1

REPORT INFORMATION
  Report Type: 
  Country: None (occurrence: None)
  Receive Date: 20070117
  Receipt Date: 20060613
  Transmission Date: 20070707
  Serious: Yes (Death)
  Sender: FDA-Public Use
  Company Number: 0512-670

PATIENT
  Age: 1 Day
  Sex: Male
  Weight: 3200 kg

DRUGS (2)
  1. CUROSURF [Suspect]
     Indication: RESPIRATORY DISTRESS
     Dosage: 480 MG-INTRATRACHEAL
     Route: 039
     Dates: start: 20061026
  2. VALIUM [Concomitant]

REACTIONS (18)
  - BRONCHITIS PNEUMOCOCCAL [None]
  - CONDITION AGGRAVATED [None]
  - CYANOSIS [None]
  - EMPHYSEMA [None]
  - GENERAL PHYSICAL HEALTH DETERIORATION [None]
  - HAEMORRHAGE [None]
  - HYPERCAPNIA [None]
  - HYPERGLYCAEMIA [None]
  - HYPOXIA [None]
  - INTERSTITIAL LUNG DISEASE [None]
  - JAUNDICE [None]
  - LEUKOPENIA [None]
  - NEONATAL HYPOTENSION [None]
  - OXYGEN SATURATION DECREASED [None]
  - PATENT DUCTUS ARTERIOSUS [None]
  - PNEUMOPERITONEUM [None]
  - SHOCK [None]
  - TRICUSPID VALVE INCOMPETENCE [None]
